FAERS Safety Report 8245947-3 (Version None)
Quarter: 2012Q1

REPORT INFORMATION
  Report Type: 
  Country: None (occurrence: None)
  Receive Date: 20120330
  Receipt Date: 20120327
  Transmission Date: 20120608
  Serious: No
  Sender: FDA-Public Use
  Company Number: US-PFIZER INC-2012060606

PATIENT
  Sex: Male
  Weight: 93.424 kg

DRUGS (3)
  1. SUBOXONE [Concomitant]
     Indication: BACK PAIN
     Dosage: UNK
  2. CHANTIX [Suspect]
     Indication: SMOKING CESSATION THERAPY
     Dosage: 0.5 MG, 1X/DAY
     Route: 048
     Dates: start: 20120226, end: 20120101
  3. CHANTIX [Suspect]
     Dosage: UNK
     Route: 048
     Dates: start: 20120101

REACTIONS (3)
  - CONSTIPATION [None]
  - ABDOMINAL PAIN UPPER [None]
  - HYPERHIDROSIS [None]
